FAERS Safety Report 14517683 (Version 2)
Quarter: 2018Q1

REPORT INFORMATION
  Report Type: Spontaneous
  Country: SK (occurrence: SK)
  Receive Date: 20180212
  Receipt Date: 20180321
  Transmission Date: 20180509
  Serious: Yes (Other)
  Sender: FDA-Public Use
  Company Number: SK-ROCHE-2071812

PATIENT
  Age: 71 Year
  Sex: Male

DRUGS (1)
  1. ACTILYSE [Suspect]
     Active Substance: ALTEPLASE
     Indication: CEREBROVASCULAR ACCIDENT
     Route: 065
     Dates: start: 201709, end: 201709

REACTIONS (2)
  - Haematuria [Recovered/Resolved]
  - Blood brain barrier defect [Recovered/Resolved]

NARRATIVE: CASE EVENT DATE: 20170914
